FAERS Safety Report 4338296-7 (Version None)
Quarter: 2004Q2

REPORT INFORMATION
  Report Type: 
  Country: None (occurrence: None)
  Receive Date: 20040409
  Receipt Date: 20040329
  Transmission Date: 20050107
  Serious: Yes (Disabling)
  Sender: FDA-Public Use
  Company Number: HQWYE043923MAR04

PATIENT
  Age: 68 Year
  Sex: Male

DRUGS (8)
  1. EFFEXOR XR [Suspect]
     Indication: DEPRESSION
     Dosage: 75 MG 1X PER 1 DAY ORAL
     Route: 048
     Dates: start: 20040202
  2. ATENOLOL [Concomitant]
  3. ZOCOR [Concomitant]
  4. NITRO-DUR [Concomitant]
  5. NORVASC [Concomitant]
  6. ATACAND (CANDESATAN CILEXETIL) [Concomitant]
  7. SYNTHROID [Concomitant]
  8. LORAZEPAM [Concomitant]

REACTIONS (2)
  - ALVEOLITIS [None]
  - DYSPNOEA EXACERBATED [None]
